FAERS Safety Report 7284384-5 (Version None)
Quarter: 2011Q1

REPORT INFORMATION
  Report Type: 
  Country: None (occurrence: None)
  Receive Date: 20110209
  Receipt Date: 20110131
  Transmission Date: 20110831
  Serious: Yes (Death, Other)
  Sender: FDA-Public Use
  Company Number: JP-AMGEN-JPNCT2011007131

PATIENT
  Age: 52 Year
  Sex: Female
  Weight: 53 kg

DRUGS (10)
  1. KINDAVATE OINTMENT [Concomitant]
     Route: 062
  2. KERATINAMIN OINTMENT [Concomitant]
     Route: 062
  3. IRINOTECAN HYDROCHLORIDE [Concomitant]
     Indication: COLORECTAL CANCER
     Route: 041
     Dates: start: 20101109, end: 20101222
  4. PANITUMUMAB [Suspect]
     Indication: COLORECTAL CANCER METASTATIC
     Dosage: 6 MG/KG, Q2WK
     Route: 041
     Dates: start: 20101109, end: 20101222
  5. ALOXI [Concomitant]
     Route: 042
  6. MERCAZOLE [Concomitant]
     Route: 048
  7. CORTICOSTEROIDS [Concomitant]
     Indication: PROPHYLAXIS
     Route: 065
  8. DECADRON [Concomitant]
     Route: 042
  9. OLMETEC [Concomitant]
     Route: 048
  10. MYSER OINTMENT [Concomitant]
     Route: 062

REACTIONS (3)
  - COLORECTAL CANCER [None]
  - HYPERURICAEMIA [None]
  - DERMATITIS ACNEIFORM [None]
